FAERS Safety Report 16977490 (Version 1)
Quarter: 2019Q4

REPORT INFORMATION
  Report Type: Spontaneous
  Country: JP (occurrence: JP)
  Receive Date: 20191031
  Receipt Date: 20191031
  Transmission Date: 20200122
  Serious: Yes (Other)
  Sender: FDA-Public Use
  Company Number: JP-SA-2019SA297274

PATIENT
  Age: 80 Year
  Sex: Male

DRUGS (3)
  1. CLARITHROMYCIN. [Concomitant]
     Active Substance: CLARITHROMYCIN
     Indication: MYCOBACTERIAL INFECTION
  2. RIFAMPICIN [Suspect]
     Active Substance: RIFAMPIN
     Indication: MYCOBACTERIAL INFECTION
     Dosage: UNK
  3. ETHAMBUTOL [Suspect]
     Active Substance: ETHAMBUTOL HYDROCHLORIDE
     Indication: MYCOBACTERIAL INFECTION
     Dosage: UNK

REACTIONS (5)
  - Leukocytosis [Recovered/Resolved]
  - Acute generalised exanthematous pustulosis [Recovered/Resolved]
  - Erythema [Recovered/Resolved]
  - Pustule [Recovered/Resolved]
  - Pyrexia [Recovered/Resolved]
